FAERS Safety Report 5322023-0 (Version None)
Quarter: 2007Q2

REPORT INFORMATION
  Report Type: 
  Country: None (occurrence: None)
  Receive Date: 20070508
  Receipt Date: 20070508
  Transmission Date: 20071010
  Serious: Yes (Other)
  Sender: FDA-Public Use
  Company Number: None

PATIENT
  Age: 58 Year
  Sex: Male
  Weight: 102.5129 kg

DRUGS (1)
  1. LAMICTAL [Suspect]
     Indication: BIPOLAR DISORDER
     Dosage: 25MG  1 TAB DAILY  PO
     Route: 048
     Dates: start: 20070103, end: 20070215

REACTIONS (2)
  - LOSS OF DREAMING [None]
  - UNEVALUABLE EVENT [None]
